FAERS Safety Report 20629202 (Version 1)
Quarter: 2022Q1

REPORT INFORMATION
  Report Type: Spontaneous
  Country: NO (occurrence: None)
  Receive Date: 20220323
  Receipt Date: 20220323
  Transmission Date: 20220423
  Serious: Yes (Other)
  Sender: FDA-Public Use
  Company Number: 2022A103444

PATIENT
  Age: 38 Year
  Sex: Female
  Weight: 70 kg

DRUGS (3)
  1. ZOMIG [Interacting]
     Active Substance: ZOLMITRIPTAN
     Indication: Migraine
     Dosage: 1.0DF UNKNOWN
     Route: 045
  2. TRAMADOL [Interacting]
     Active Substance: TRAMADOL
     Indication: Back pain
     Dosage: 1 DF, 50-100 MG WHEN NEEDED (RARELY MORE THAN 0-2 TIMES A MONTH)
     Route: 048
     Dates: start: 2016
  3. LAMOTRIGINE [Concomitant]
     Active Substance: LAMOTRIGINE
     Indication: Epilepsy
     Route: 065

REACTIONS (9)
  - Nausea [Unknown]
  - Confusional state [Unknown]
  - Palpitations [Unknown]
  - Vomiting [Unknown]
  - Heart rate increased [Unknown]
  - Tremor [Unknown]
  - Hyperhidrosis [Unknown]
  - Drug interaction [Unknown]
  - Blood pressure decreased [Unknown]
